FAERS Safety Report 19738037 (Version 2)
Quarter: 2021Q3

REPORT INFORMATION
  Report Type: Spontaneous
  Country: US (occurrence: US)
  Receive Date: 20210823
  Receipt Date: 20210825
  Transmission Date: 20211014
  Serious: Yes (Other)
  Sender: FDA-Public Use
  Company Number: US-ROCHE-2894802

PATIENT
  Age: 74 Year
  Sex: Female
  Weight: 104.6 kg

DRUGS (1)
  1. ACTEMRA [Suspect]
     Active Substance: TOCILIZUMAB
     Indication: COVID-19
     Route: 065
     Dates: start: 20210805, end: 20210805

REACTIONS (4)
  - Off label use [Unknown]
  - Sepsis [Unknown]
  - Pseudomonal bacteraemia [Unknown]
  - COVID-19 [Unknown]
